FAERS Safety Report 9054811 (Version 1)
Quarter: 2013Q1

REPORT INFORMATION
  Report Type: Spontaneous
  Country: CN (occurrence: CN)
  Receive Date: 20130209
  Receipt Date: 20130209
  Transmission Date: 20140127
  Serious: Yes (Life-Threatening, Other)
  Sender: FDA-Public Use
  Company Number: CN-ROXANE LABORATORIES, INC.-2013-RO-00206RO

PATIENT
  Age: 2 Year
  Sex: Female

DRUGS (4)
  1. LEVETIRACETAM [Suspect]
     Indication: CONVULSION
  2. LEVETIRACETAM [Suspect]
  3. OXCARBAZEPINE [Suspect]
     Indication: CONVULSION
  4. PHENOBARBITAL [Suspect]
     Indication: CONVULSION

REACTIONS (3)
  - Stevens-Johnson syndrome [Recovered/Resolved]
  - Drug eruption [Recovered/Resolved]
  - Convulsion [Unknown]
